FAERS Safety Report 4688826-0 (Version None)
Quarter: 2005Q2

REPORT INFORMATION
  Report Type: 
  Country: None (occurrence: None)
  Receive Date: 20050613
  Receipt Date: 20041203
  Transmission Date: 20051028
  Serious: Yes (Other)
  Sender: FDA-Public Use
  Company Number: GB-GLAXOSMITHKLINE-B0360500A

PATIENT
  Sex: Male

DRUGS (1)
  1. PAROXETINE HYDROCHLORIDE [Suspect]
     Dosage: 30MG PER DAY
     Route: 065
     Dates: start: 19990101, end: 20040201

REACTIONS (17)
  - AGGRESSION [None]
  - ANXIETY [None]
  - CRYING [None]
  - DISTURBANCE IN ATTENTION [None]
  - DIZZINESS [None]
  - DRUG WITHDRAWAL SYNDROME [None]
  - EMOTIONAL DISTRESS [None]
  - HEADACHE [None]
  - HYPERHIDROSIS [None]
  - LIBIDO DECREASED [None]
  - NIGHTMARE [None]
  - NOCTURNAL EMISSION [None]
  - PARAESTHESIA [None]
  - PHOTOSENSITIVITY REACTION [None]
  - POLLAKIURIA [None]
  - VERTIGO [None]
  - VISION BLURRED [None]
